FAERS Safety Report 7132701-9 (Version None)
Quarter: 2010Q4

REPORT INFORMATION
  Report Type: 
  Country: None (occurrence: None)
  Receive Date: 20101129
  Receipt Date: 20101129
  Transmission Date: 20110411
  Serious: Yes (Life-Threatening)
  Sender: FDA-Public Use
  Company Number: None

PATIENT
  Age: 31 Year
  Sex: Female
  Weight: 77.7 kg

DRUGS (3)
  1. FOLIC ACID [Suspect]
     Indication: HYPEREMESIS GRAVIDARUM
     Dosage: 1MG DAILY INTRAVENOUSLY
     Route: 042
     Dates: start: 20101117
  2. THIAMINE 100MG/1ML 2ML VIAL APP PHARMACEUTICALS, LLC [Suspect]
     Indication: HYPEREMESIS GRAVIDARUM
     Dosage: 100MG DAILY INTRAVENOUSLY
     Route: 042
     Dates: start: 20101117
  3. LACTATED RINGER'S AND DEXTROSE 5% [Concomitant]

REACTIONS (3)
  - CHEST PAIN [None]
  - DYSPNOEA [None]
  - PALPITATIONS [None]
